FAERS Safety Report 16541188 (Version 3)
Quarter: 2020Q1

REPORT INFORMATION
  Report Type: Spontaneous
  Country: US (occurrence: US)
  Receive Date: 20190708
  Receipt Date: 20200224
  Transmission Date: 20200409
  Serious: Yes (Other)
  Sender: FDA-Public Use
  Company Number: US-ASTRAZENECA-2019SE95778

PATIENT
  Age: 17354 Day
  Sex: Female

DRUGS (47)
  1. NEXIUM [Suspect]
     Active Substance: ESOMEPRAZOLE MAGNESIUM
     Indication: GASTROOESOPHAGEAL REFLUX DISEASE
     Route: 048
     Dates: start: 20100212
  2. GLUCOTROL XL [Concomitant]
     Active Substance: GLIPIZIDE
     Route: 048
     Dates: start: 20091106
  3. LISINOPRIL-HYDROCHLOROTHIAZIDE [Concomitant]
     Active Substance: HYDROCHLOROTHIAZIDE\LISINOPRIL
     Dosage: 10-12.5 MG EVERY OTHER DAY
     Route: 048
     Dates: start: 20090731
  4. HYDROCODONE-ACETAMINOPHEN [Concomitant]
     Active Substance: ACETAMINOPHEN\HYDROCODONE
     Dosage: 5-500 MG DAILY
     Route: 048
     Dates: start: 20100428
  5. CLINDAMYCIN. [Concomitant]
     Active Substance: CLINDAMYCIN
     Dosage: 300.0MG EVERY 4 - 6 HOURS
     Route: 048
     Dates: start: 20150526
  6. ALENDRONATE SODIUM. [Concomitant]
     Active Substance: ALENDRONATE SODIUM
     Route: 048
     Dates: start: 20150526
  7. PROGRAF [Concomitant]
     Active Substance: TACROLIMUS
     Indication: TRANSPLANT
  8. ZOLOFT [Concomitant]
     Active Substance: SERTRALINE HYDROCHLORIDE
     Indication: TRANSPLANT
  9. CALCIUM [Concomitant]
     Active Substance: CALCIUM
  10. PEPCID COMPLETE [Concomitant]
     Active Substance: CALCIUM CARBONATE\FAMOTIDINE\MAGNESIUM HYDROXIDE
  11. CIPRO [Concomitant]
     Active Substance: CIPROFLOXACIN HYDROCHLORIDE
     Dosage: 5-500 MG DAILY
     Route: 048
     Dates: start: 20100428
  12. FLAGYL [Concomitant]
     Active Substance: METRONIDAZOLE\METRONIDAZOLE HYDROCHLORIDE
     Route: 048
     Dates: start: 20100331
  13. DIFLUCAN [Concomitant]
     Active Substance: FLUCONAZOLE
     Dates: start: 20111107
  14. PENTAM [Concomitant]
     Active Substance: PENTAMIDINE ISETHIONATE
  15. OMEPRAZOLE. [Suspect]
     Active Substance: OMEPRAZOLE
     Indication: GASTROOESOPHAGEAL REFLUX DISEASE
     Dosage: GENERIC
     Route: 065
     Dates: start: 2015
  16. MELATONIN [Concomitant]
     Active Substance: MELATONIN
     Indication: TRANSPLANT
  17. DARVOCET [Concomitant]
     Active Substance: ACETAMINOPHEN\PROPOXYPHENE HYDROCHLORIDE
     Dosage: 100-6500 MG
     Route: 048
     Dates: start: 20090731
  18. LEXAPRO [Concomitant]
     Active Substance: ESCITALOPRAM OXALATE
     Route: 048
     Dates: start: 20090709
  19. ONDANSETRON [Concomitant]
     Active Substance: ONDANSETRON
     Dosage: 4.0MG EVERY 4 - 6 HOURS
     Route: 048
     Dates: start: 20111019
  20. LEVAQUIN [Concomitant]
     Active Substance: LEVOFLOXACIN
     Route: 048
     Dates: start: 20100421
  21. CIMETIDINE [Concomitant]
     Active Substance: CIMETIDINE
     Dosage: GENERIC CIMETIDINE
  22. NEXIUM [Suspect]
     Active Substance: ESOMEPRAZOLE MAGNESIUM
     Indication: GASTROOESOPHAGEAL REFLUX DISEASE
     Route: 048
     Dates: start: 20090731
  23. HYDROCHLOROTHIAZIDE. [Concomitant]
     Active Substance: HYDROCHLOROTHIAZIDE
     Route: 048
     Dates: start: 20100212
  24. PAROXETINE. [Concomitant]
     Active Substance: PAROXETINE
     Route: 048
     Dates: start: 20150216
  25. OFLOXACIN. [Concomitant]
     Active Substance: OFLOXACIN
     Dates: start: 20150831
  26. ASPIRIN. [Concomitant]
     Active Substance: ASPIRIN
     Dates: start: 20111107
  27. VALCYTE [Concomitant]
     Active Substance: VALGANCICLOVIR HYDROCHLORIDE
     Dates: start: 20110818
  28. NEXIUM [Suspect]
     Active Substance: ESOMEPRAZOLE MAGNESIUM
     Indication: GASTROOESOPHAGEAL REFLUX DISEASE
     Route: 048
     Dates: start: 2009, end: 2012
  29. OMEPRAZOLE. [Suspect]
     Active Substance: OMEPRAZOLE
     Indication: GASTROOESOPHAGEAL REFLUX DISEASE
     Dosage: GENERIC
     Route: 048
     Dates: start: 20150227
  30. JANUVIA [Concomitant]
     Active Substance: SITAGLIPTIN PHOSPHATE
     Route: 048
     Dates: start: 20090731
  31. CLOTRIMAZOLE. [Concomitant]
     Active Substance: CLOTRIMAZOLE
     Dates: start: 20190219
  32. FOLIC ACID. [Concomitant]
     Active Substance: FOLIC ACID
     Route: 048
     Dates: start: 20150720
  33. TRAMADOL. [Concomitant]
     Active Substance: TRAMADOL
     Dosage: 50.0MG EVERY 4 - 6 HOURS
     Route: 048
     Dates: start: 20160114
  34. IMODIUM [Concomitant]
     Active Substance: LOPERAMIDE HYDROCHLORIDE
     Dates: start: 20110816
  35. NEXIUM [Suspect]
     Active Substance: ESOMEPRAZOLE MAGNESIUM
     Indication: GASTROOESOPHAGEAL REFLUX DISEASE
     Route: 048
     Dates: start: 20090731
  36. HYDROCORTISONE. [Concomitant]
     Active Substance: HYDROCORTISONE
     Indication: TRANSPLANT
  37. ZANAFLEX [Concomitant]
     Active Substance: TIZANIDINE HYDROCHLORIDE
     Route: 048
     Dates: start: 20090731
  38. PROMETHAZINE [Concomitant]
     Active Substance: PROMETHAZINE HYDROCHLORIDE
     Dosage: 25.0MG EVERY 4 - 6 HOURS
     Route: 065
     Dates: start: 20100430
  39. MS CONTIN [Concomitant]
     Active Substance: MORPHINE SULFATE
     Dosage: 12.0MG EVERY 8 - 12 HOURS
     Route: 048
     Dates: start: 20130402
  40. MIRTAZAPINE. [Concomitant]
     Active Substance: MIRTAZAPINE
     Route: 048
     Dates: start: 20150216
  41. PROTONIX [Concomitant]
     Active Substance: PANTOPRAZOLE SODIUM
     Dates: start: 20111107
  42. NOVOLOG [Concomitant]
     Active Substance: INSULIN ASPART
     Dates: start: 20110818
  43. PREDNISONE. [Concomitant]
     Active Substance: PREDNISONE
     Dates: start: 20110818
  44. VITAMIN D [Concomitant]
     Active Substance: VITAMIN D NOS
     Indication: TRANSPLANT
  45. ZANTAC [Concomitant]
     Active Substance: RANITIDINE HYDROCHLORIDE
  46. BACTRIM [Concomitant]
     Active Substance: SULFAMETHOXAZOLE\TRIMETHOPRIM
     Route: 048
     Dates: start: 20091225
  47. ZYPREXA [Concomitant]
     Active Substance: OLANZAPINE
     Dates: start: 20111107

REACTIONS (5)
  - Acute kidney injury [Unknown]
  - Coma [Unknown]
  - Depression [Unknown]
  - Chronic kidney disease [Unknown]
  - End stage renal disease [Not Recovered/Not Resolved]

NARRATIVE: CASE EVENT DATE: 20110502
